FAERS Safety Report 24321447 (Version 1)
Quarter: 2024Q3

REPORT INFORMATION
  Report Type: Spontaneous
  Country: FR (occurrence: FR)
  Receive Date: 20240916
  Receipt Date: 20240916
  Transmission Date: 20241017
  Serious: Yes (Hospitalization)
  Sender: ORGANON
  Company Number: None

PATIENT
  Age: 72 Year
  Sex: Male
  Weight: 50 kg

DRUGS (7)
  1. MIRTAZAPINE [Suspect]
     Active Substance: MIRTAZAPINE
     Indication: Wrong patient
     Dosage: 15 MILLIGRAM, ONCE
     Route: 048
     Dates: start: 20240716, end: 20240716
  2. TRAMADOL HYDROCHLORIDE [Suspect]
     Active Substance: TRAMADOL HYDROCHLORIDE
     Indication: Wrong patient
     Dosage: 150 MILLIGRAM, ONCE
     Route: 048
     Dates: start: 20240716, end: 20240716
  3. QUETIAPINE FUMARATE [Suspect]
     Active Substance: QUETIAPINE FUMARATE
     Indication: Wrong patient
     Dosage: 300 MILLIGRAM, ONCE
     Route: 048
     Dates: start: 20240716, end: 20240716
  4. LIORESAL [Concomitant]
     Active Substance: BACLOFEN
     Indication: Muscle spasticity
     Dosage: 10 MILLIGRAM, Q8H
     Route: 048
     Dates: start: 20240705
  5. GABAPENTIN [Concomitant]
     Active Substance: GABAPENTIN
     Indication: Product used for unknown indication
     Dosage: 100 MILLIGRAM, Q8H
     Route: 048
     Dates: start: 20240216
  6. DAFALGAN [Concomitant]
     Active Substance: ACETAMINOPHEN
     Indication: Wrong patient
     Dosage: 1000 MILLIGRAM, ONCE
     Route: 048
     Dates: start: 20240716, end: 20240716
  7. OXAZEPAM [Concomitant]
     Active Substance: OXAZEPAM
     Indication: Product used for unknown indication
     Dosage: 10 MILLIGRAM, Q12H
     Route: 048
     Dates: start: 20240705

REACTIONS (2)
  - Somnolence [Recovered/Resolved]
  - Wrong patient received product [Recovered/Resolved]

NARRATIVE: CASE EVENT DATE: 20240716
